FAERS Safety Report 12630638 (Version 1)
Quarter: 2016Q3

REPORT INFORMATION
  Report Type: Spontaneous
  Country: US (occurrence: US)
  Receive Date: 20160808
  Receipt Date: 20160808
  Transmission Date: 20161109
  Serious: No
  Sender: FDA-Public Use
  Company Number: US-PFIZER INC-2016371571

PATIENT
  Age: 71 Year
  Sex: Female

DRUGS (1)
  1. VENLAFAXINE ER [Suspect]
     Active Substance: VENLAFAXINE HYDROCHLORIDE
     Dosage: 225 MG, 1X/DAY

REACTIONS (2)
  - Confusional state [Unknown]
  - Drug ineffective [Unknown]
